FAERS Safety Report 6573345-7 (Version None)
Quarter: 2010Q1

REPORT INFORMATION
  Report Type: 
  Country: None (occurrence: None)
  Receive Date: 20100208
  Receipt Date: 20100129
  Transmission Date: 20100710
  Serious: Yes (Other)
  Sender: FDA-Public Use
  Company Number: US-RB-001810-10

PATIENT
  Age: 24 Year
  Sex: Male

DRUGS (3)
  1. SUBOXONE [Suspect]
     Dosage: 4-8 MG DAILY
     Route: 060
     Dates: start: 20080801
  2. CLONAZEPAM [Concomitant]
     Indication: ANXIETY
     Route: 065
     Dates: end: 20090101
  3. PRILOSEC [Concomitant]
     Dosage: UNKNOWN DOSING DETAILS
     Route: 065

REACTIONS (1)
  - CONVULSION [None]
